FAERS Safety Report 21017342 (Version 1)
Quarter: 2022Q2

REPORT INFORMATION
  Report Type: Spontaneous
  Country: CA (occurrence: CA)
  Receive Date: 20220628
  Receipt Date: 20220628
  Transmission Date: 20220721
  Serious: Yes (Other)
  Sender: FDA-Public Use
  Company Number: CA-PFIZER INC-202200860892

PATIENT
  Age: 11 Day
  Sex: Male
  Weight: 2.92 kg

DRUGS (1)
  1. HEPARIN SODIUM [Suspect]
     Active Substance: HEPARIN SODIUM
     Indication: Hypercoagulation
     Dosage: UNK

REACTIONS (1)
  - Kawasaki^s disease [Recovered/Resolved]
